FAERS Safety Report 6420012-6 (Version None)
Quarter: 2009Q4

REPORT INFORMATION
  Report Type: 
  Country: None (occurrence: None)
  Receive Date: 20091029
  Receipt Date: 20080903
  Transmission Date: 20100525
  Serious: No
  Sender: FDA-Public Use
  Company Number: A0745933A

PATIENT
  Sex: Male

DRUGS (3)
  1. IMITREX [Suspect]
     Indication: MIGRAINE
     Dosage: 20MGK AS REQUIRED
     Route: 045
     Dates: start: 20080831
  2. IMITREX [Suspect]
     Route: 058
     Dates: start: 20030101, end: 20080101
  3. ATENOLOL [Concomitant]

REACTIONS (3)
  - BLOOD PRESSURE INCREASED [None]
  - DRUG INEFFECTIVE [None]
  - MIGRAINE [None]
